FAERS Safety Report 16226917 (Version 1)
Quarter: 2019Q2

REPORT INFORMATION
  Report Type: Other
  Country: CA (occurrence: CA)
  Receive Date: 20190423
  Receipt Date: 20190423
  Transmission Date: 20190711
  Serious: Yes (Hospitalization, Other)
  Sender: FDA-Public Use
  Company Number: CA-APOTEX-2019AP012143

PATIENT
  Age: 31 Year
  Sex: Female

DRUGS (16)
  1. ACETAMINOPHEN. [Suspect]
     Active Substance: ACETAMINOPHEN
     Indication: HEADACHE
     Dosage: 325 MG, UNK
     Route: 048
  2. ALEMTUZUMAB [Interacting]
     Active Substance: ALEMTUZUMAB
     Indication: PRODUCT USED FOR UNKNOWN INDICATION
     Dosage: 12 MG, , 1 EVERY 1 DAY
     Route: 041
  3. ADVIL PM [Concomitant]
     Active Substance: DIPHENHYDRAMINE CITRATE\IBUPROFEN
     Indication: PRODUCT USED FOR UNKNOWN INDICATION
     Dosage: 3 DF, UNK
     Route: 048
  4. RANITIDINE. [Concomitant]
     Active Substance: RANITIDINE
     Indication: PREMEDICATION
     Dosage: 150 MG, UNK
     Route: 048
  5. REACTINE                           /00884302/ [Concomitant]
     Active Substance: CETIRIZINE HYDROCHLORIDE
     Indication: PREMEDICATION
     Dosage: 10 MG, UNK
     Route: 048
  6. ZOPICLONE [Concomitant]
     Active Substance: ZOPICLONE
     Indication: PRODUCT USED FOR UNKNOWN INDICATION
     Dosage: 7.5 MG, UNK
     Route: 048
  7. MARIJUANA [Concomitant]
     Active Substance: CANNABIS SATIVA SUBSP. INDICA TOP
     Indication: PRODUCT USED FOR UNKNOWN INDICATION
     Route: 065
  8. METHYLPREDNISOLONE. [Concomitant]
     Active Substance: METHYLPREDNISOLONE
     Indication: PREMEDICATION
     Dosage: 1 G, UNK
     Route: 042
  9. ZOPICLONE [Concomitant]
     Active Substance: ZOPICLONE
     Dosage: UNK
     Route: 048
  10. BENADRYL [Concomitant]
     Active Substance: DIPHENHYDRAMINE HYDROCHLORIDE
     Indication: PREMEDICATION
     Dosage: 50 MG, TID
     Route: 048
  11. CLONAZEPAM. [Concomitant]
     Active Substance: CLONAZEPAM
     Indication: PRODUCT USED FOR UNKNOWN INDICATION
     Dosage: UNK, QD
     Route: 048
  12. ACICLOVIR [Concomitant]
     Active Substance: ACYCLOVIR
     Indication: PREMEDICATION
     Dosage: 200 MG, Q.12H,
     Route: 048
  13. GRAVOL [Concomitant]
     Active Substance: DIMENHYDRINATE
     Indication: PREMEDICATION
     Dosage: 50 MG, UNK
     Route: 048
  14. SERTRALINE [Concomitant]
     Active Substance: SERTRALINE HYDROCHLORIDE
     Indication: PRODUCT USED FOR UNKNOWN INDICATION
     Dosage: UNK, ONCE IN ONE DAY
     Route: 048
  15. ZOPICLONE [Concomitant]
     Active Substance: ZOPICLONE
     Dosage: 3.75 MG, UNK
     Route: 065
  16. GABAPENTIN. [Concomitant]
     Active Substance: GABAPENTIN
     Indication: PRODUCT USED FOR UNKNOWN INDICATION
     Dosage: UNK, QD
     Route: 048

REACTIONS (47)
  - Headache [Not Recovered/Not Resolved]
  - Pain of skin [Not Recovered/Not Resolved]
  - Vomiting [Not Recovered/Not Resolved]
  - Thinking abnormal [Not Recovered/Not Resolved]
  - Migraine [Not Recovered/Not Resolved]
  - Suicidal ideation [Not Recovered/Not Resolved]
  - Chills [Not Recovered/Not Resolved]
  - Cough [Not Recovered/Not Resolved]
  - Emotional disorder [Not Recovered/Not Resolved]
  - Feeling cold [Not Recovered/Not Resolved]
  - Product use issue [Not Recovered/Not Resolved]
  - Hypoaesthesia [Not Recovered/Not Resolved]
  - Multiple sclerosis relapse [Not Recovered/Not Resolved]
  - Flushing [Not Recovered/Not Resolved]
  - Dizziness [Not Recovered/Not Resolved]
  - Flashback [Not Recovered/Not Resolved]
  - Hypersensitivity [Not Recovered/Not Resolved]
  - Post-traumatic stress disorder [Not Recovered/Not Resolved]
  - Pyrexia [Not Recovered/Not Resolved]
  - Vitreous floaters [Not Recovered/Not Resolved]
  - Crying [Not Recovered/Not Resolved]
  - Feeling abnormal [Not Recovered/Not Resolved]
  - Hypotension [Not Recovered/Not Resolved]
  - Optic neuritis [Not Recovered/Not Resolved]
  - Panic attack [Not Recovered/Not Resolved]
  - Rash generalised [Not Recovered/Not Resolved]
  - Blindness [Not Recovered/Not Resolved]
  - Hospitalisation [Not Recovered/Not Resolved]
  - Swelling [Not Recovered/Not Resolved]
  - Throat tightness [Not Recovered/Not Resolved]
  - Vision blurred [Not Recovered/Not Resolved]
  - Dyspnoea [Not Recovered/Not Resolved]
  - Diplopia [Not Recovered/Not Resolved]
  - Erythema [Not Recovered/Not Resolved]
  - Infusion site extravasation [Not Recovered/Not Resolved]
  - Nausea [Not Recovered/Not Resolved]
  - Malaise [Not Recovered/Not Resolved]
  - Skin swelling [Not Recovered/Not Resolved]
  - Tearfulness [Not Recovered/Not Resolved]
  - Tremor [Not Recovered/Not Resolved]
  - Drug interaction [Not Recovered/Not Resolved]
  - Fatigue [Not Recovered/Not Resolved]
  - Feeling hot [Not Recovered/Not Resolved]
  - Insomnia [Not Recovered/Not Resolved]
  - Condition aggravated [Not Recovered/Not Resolved]
  - Constipation [Not Recovered/Not Resolved]
  - Diarrhoea [Not Recovered/Not Resolved]
